FAERS Safety Report 6515990-0 (Version None)
Quarter: 2009Q4

REPORT INFORMATION
  Report Type: 
  Country: None (occurrence: None)
  Receive Date: 20091223
  Receipt Date: 20091216
  Transmission Date: 20100525
  Serious: Yes (Other)
  Sender: FDA-Public Use
  Company Number: US-SANOFI-AVENTIS-2009SA009396

PATIENT
  Age: 77 Year
  Sex: Male

DRUGS (1)
  1. MULTAQ [Suspect]
     Indication: HEART RATE INCREASED
     Route: 048
     Dates: start: 20091001

REACTIONS (2)
  - CARDIAC DISORDER [None]
  - MUSCLE INJURY [None]
